FAERS Safety Report 9655485 (Version 2)
Quarter: 2013Q4

REPORT INFORMATION
  Report Type: Spontaneous
  Country: US (occurrence: US)
  Receive Date: 20131029
  Receipt Date: 20131029
  Transmission Date: 20140711
  Serious: No
  Sender: FDA-Public Use
  Company Number: US-PURDUE-USA-2011-0077663

PATIENT
  Sex: Male

DRUGS (1)
  1. OXYCONTIN (NDA 22-272) [Suspect]
     Indication: PAIN
     Dosage: 40 MG, UNK

REACTIONS (8)
  - Drug withdrawal syndrome [Recovering/Resolving]
  - Impaired work ability [Recovering/Resolving]
  - Quality of life decreased [Recovering/Resolving]
  - Drug intolerance [Recovering/Resolving]
  - Medication residue present [Recovering/Resolving]
  - Drug ineffective [Recovering/Resolving]
  - Inadequate analgesia [Recovering/Resolving]
  - Drug effect decreased [Recovering/Resolving]
